FAERS Safety Report 12081321 (Version 1)
Quarter: 2016Q1

REPORT INFORMATION
  Report Type: Spontaneous
  Country: US (occurrence: US)
  Receive Date: 20160216
  Receipt Date: 20160216
  Transmission Date: 20160526
  Serious: Yes (Other)
  Sender: FDA-Public Use
  Company Number: US-ABBVIE-16P-163-1559631-00

PATIENT
  Age: 65 Year
  Sex: Male

DRUGS (1)
  1. SEVOFLURANE. [Suspect]
     Active Substance: SEVOFLURANE
     Indication: ANAESTHESIA
     Route: 055

REACTIONS (1)
  - Epilepsy [Recovered/Resolved]
